FAERS Safety Report 8943072 (Version 2)
Quarter: 2013Q1

REPORT INFORMATION
  Report Type: Spontaneous
  Country: US (occurrence: US)
  Receive Date: 20121204
  Receipt Date: 20130308
  Transmission Date: 20140127
  Serious: Yes (Other)
  Sender: FDA-Public Use
  Company Number: US-PAR PHARMACEUTICAL, INC-2012SCPR004732

PATIENT
  Sex: 0

DRUGS (2)
  1. BUPROPION HCL XL TABLETS [Suspect]
     Indication: PRODUCT USED FOR UNKNOWN INDICATION
     Dosage: UNK UNK, UNKNOWN
     Route: 065
     Dates: start: 201205
  2. BUPROPION HCL XL TABLETS [Suspect]
     Indication: PRODUCT USED FOR UNKNOWN INDICATION
     Dosage: UNK UNK, QD
     Route: 065

REACTIONS (15)
  - Expressive language disorder [Unknown]
  - Slow speech [Unknown]
  - Cognitive disorder [Unknown]
  - Impatience [Unknown]
  - Anger [Unknown]
  - Depressed mood [Unknown]
  - Crying [Unknown]
  - Burnout syndrome [Unknown]
  - Feeling abnormal [Unknown]
  - Constipation [Unknown]
  - Agitation [Unknown]
  - Fatigue [Unknown]
  - Hostility [Unknown]
  - Anxiety [Unknown]
  - Product quality issue [Unknown]
